FAERS Safety Report 9773929 (Version 1)
Quarter: 2013Q4

REPORT INFORMATION
  Report Type: Spontaneous
  Country: CL (occurrence: CL)
  Receive Date: 20131220
  Receipt Date: 20131220
  Transmission Date: 20140711
  Serious: Yes (Other)
  Sender: FDA-Public Use
  Company Number: CL-009507513-1312CHL007811

PATIENT
  Sex: Female

DRUGS (1)
  1. IMPLANON [Suspect]
     Indication: CONTRACEPTION
     Dosage: 60G-70G(ON WEEKS 5-6),35G-45G(END OF 1ST YEAR),30G-40G(END OF 2ND YEAR),25G-30G(END OF 3RD YEAR)
     Route: 059

REACTIONS (3)
  - Hemiplegia [Recovering/Resolving]
  - Aneurysm [Unknown]
  - Subarachnoid haemorrhage [Unknown]
